FAERS Safety Report 7978615-3 (Version None)
Quarter: 2011Q4

REPORT INFORMATION
  Report Type: 
  Country: None (occurrence: None)
  Receive Date: 20111129
  Receipt Date: 20110909
  Transmission Date: 20120403
  Serious: No
  Sender: FDA-Public Use
  Company Number: PHEH2011US03758

PATIENT
  Age: 9 Year
  Sex: Male

DRUGS (1)
  1. AFINITOR [Suspect]
     Indication: ASTROCYTOMA
     Dosage: 5 MG, UNK, ORAL 2.5 MG, UNK, ORAL
     Route: 048
     Dates: start: 20110806

REACTIONS (3)
  - CONSTIPATION [None]
  - HEADACHE [None]
  - ABDOMINAL PAIN UPPER [None]
